FAERS Safety Report 4831725-1 (Version None)
Quarter: 2005Q4

REPORT INFORMATION
  Report Type: 
  Country: None (occurrence: None)
  Receive Date: 20051118
  Receipt Date: 20040428
  Transmission Date: 20060501
  Serious: Yes (Other)
  Sender: FDA-Public Use
  Company Number: PHNU2004DE01683

PATIENT
  Age: 55 Year
  Sex: Female

DRUGS (2)
  1. GLEEVEC [Suspect]
     Indication: SARCOMA
     Dosage: 400 MG/DAY
     Route: 048
     Dates: start: 20020301, end: 20040101
  2. GLEEVEC [Suspect]
     Dosage: 600 MG/DAY
     Dates: start: 20040101

REACTIONS (6)
  - CATARACT [None]
  - CONJUNCTIVITIS [None]
  - DRUG INEFFECTIVE [None]
  - EYE PRURITUS [None]
  - VISION BLURRED [None]
  - VISUAL ACUITY REDUCED [None]
